FAERS Safety Report 14034716 (Version 1)
Quarter: 2017Q4

REPORT INFORMATION
  Report Type: Spontaneous
  Country: US (occurrence: None)
  Receive Date: 20171003
  Receipt Date: 20171003
  Transmission Date: 20180321
  Serious: No
  Sender: FDA-Public Use
  Company Number: None

PATIENT
  Age: 73 Year
  Sex: Male
  Weight: 88.9 kg

DRUGS (21)
  1. METHOCARBAM [Concomitant]
  2. OMEGA 3 FISH OIL [Concomitant]
     Active Substance: FISH OIL\OMEGA-3 FATTY ACIDS
  3. CRESTOR [Concomitant]
     Active Substance: ROSUVASTATIN CALCIUM
  4. CLOPIDOGREL [Concomitant]
     Active Substance: CLOPIDOGREL BISULFATE
  5. TESTOSTERONE CYPIONATE. [Suspect]
     Active Substance: TESTOSTERONE CYPIONATE
     Indication: BLADDER DISORDER
     Dosage: 200MG/ML 1 10ML VIAL ONE INJECTION ONCE WEEKLY INJECTION INTO UPPER RIGHT LEG
     Route: 058
     Dates: start: 20070315
  6. VITAMIN B12 [Concomitant]
     Active Substance: CYANOCOBALAMIN
  7. LISINOPRIL. [Concomitant]
     Active Substance: LISINOPRIL
  8. BYSTOLIC [Concomitant]
     Active Substance: NEBIVOLOL HYDROCHLORIDE
  9. ASPIRIN. [Concomitant]
     Active Substance: ASPIRIN
  10. FOLIC ACID. [Concomitant]
     Active Substance: FOLIC ACID
  11. HYDROCODONE BITARTRATE AND ACETAMINOPHEN [Concomitant]
     Active Substance: ACETAMINOPHEN\HYDROCODONE BITARTRATE
  12. HYDROCHLOROTHIAZIDE. [Concomitant]
     Active Substance: HYDROCHLOROTHIAZIDE
  13. ACETAMINOPHEN. [Concomitant]
     Active Substance: ACETAMINOPHEN
  14. TRADJENTA [Concomitant]
     Active Substance: LINAGLIPTIN
  15. TESTOSTERONE CYPIONATE. [Suspect]
     Active Substance: TESTOSTERONE CYPIONATE
     Indication: ERECTILE DYSFUNCTION
     Dosage: 200MG/ML 1 10ML VIAL ONE INJECTION ONCE WEEKLY INJECTION INTO UPPER RIGHT LEG
     Route: 058
     Dates: start: 20070315
  16. ALEVE [Concomitant]
     Active Substance: NAPROXEN SODIUM
  17. OMEPRAZOLE. [Concomitant]
     Active Substance: OMEPRAZOLE
  18. NIACIN. [Concomitant]
     Active Substance: NIACIN
  19. NOVOLOG MIX 70/30 [Concomitant]
     Active Substance: INSULIN ASPART
  20. BABY ASPIRIN [Concomitant]
     Active Substance: ASPIRIN
  21. TESTOSTERONE CYP [Concomitant]
     Active Substance: TESTOSTERONE CYPIONATE

REACTIONS (2)
  - Drug dispensing error [None]
  - Balance disorder [None]

NARRATIVE: CASE EVENT DATE: 20170821
